FAERS Safety Report 6087331-7 (Version None)
Quarter: 2009Q1

REPORT INFORMATION
  Report Type: 
  Country: None (occurrence: None)
  Receive Date: 20090223
  Receipt Date: 20090216
  Transmission Date: 20090719
  Serious: Yes (Hospitalization)
  Sender: FDA-Public Use
  Company Number: B0551499A

PATIENT
  Age: 58 Year
  Sex: Male
  Weight: 77 kg

DRUGS (10)
  1. RELENZA [Suspect]
     Indication: INFLUENZA
     Dosage: 10MG TWICE PER DAY
     Route: 055
     Dates: start: 20081107, end: 20081108
  2. SAWACILLIN [Suspect]
     Indication: NASOPHARYNGITIS
     Dosage: 500MG TWICE PER DAY
     Route: 048
     Dates: start: 20081018, end: 20080101
  3. LOXONIN [Suspect]
     Indication: NECK PAIN
     Dosage: 60MG UNKNOWN
     Route: 048
     Dates: start: 20081015
  4. VOLTAREN [Concomitant]
     Route: 065
     Dates: start: 20081105
  5. ASPIRIN [Concomitant]
     Dosage: 100MG PER DAY
     Route: 048
  6. NORVASC [Concomitant]
     Indication: HYPERTENSION
     Dosage: 5MG PER DAY
     Route: 048
  7. LOSARTAN POTASSIUM [Concomitant]
     Indication: HYPERTENSION
     Route: 048
  8. ASPIRIN [Concomitant]
     Dosage: 100MG PER DAY
     Route: 048
     Dates: start: 20081120
  9. NORVASC [Concomitant]
     Route: 048
     Dates: start: 20081120
  10. LOSARTAN POTASSIUM [Concomitant]
     Route: 048
     Dates: start: 20081120

REACTIONS (28)
  - ALANINE AMINOTRANSFERASE INCREASED [None]
  - ASPARTATE AMINOTRANSFERASE INCREASED [None]
  - BLOOD ALKALINE PHOSPHATASE INCREASED [None]
  - BLOOD LACTATE DEHYDROGENASE INCREASED [None]
  - BLOOD UREA INCREASED [None]
  - BODY TEMPERATURE INCREASED [None]
  - C-REACTIVE PROTEIN INCREASED [None]
  - CHILLS [None]
  - EATING DISORDER [None]
  - EOSINOPHIL COUNT DECREASED [None]
  - ERYTHEMA MULTIFORME [None]
  - GAMMA-GLUTAMYLTRANSFERASE [None]
  - HEPATIC FUNCTION ABNORMAL [None]
  - LEUCINE AMINOPEPTIDASE INCREASED [None]
  - LIP EROSION [None]
  - LYMPHOCYTE COUNT DECREASED [None]
  - LYMPHOCYTE COUNT INCREASED [None]
  - MUCOSAL EROSION [None]
  - NEUTROPHIL COUNT DECREASED [None]
  - NEUTROPHIL COUNT INCREASED [None]
  - OCULAR HYPERAEMIA [None]
  - ORAL MUCOSAL ERYTHEMA [None]
  - OROPHARYNGEAL PAIN [None]
  - PYREXIA [None]
  - RASH [None]
  - STEVENS-JOHNSON SYNDROME [None]
  - SYPHILIS TEST [None]
  - WHITE BLOOD CELL COUNT INCREASED [None]
